FAERS Safety Report 18358402 (Version 2)
Quarter: 2021Q3

REPORT INFORMATION
  Report Type: Spontaneous
  Country: US (occurrence: US)
  Receive Date: 20201008
  Receipt Date: 20210930
  Transmission Date: 20211014
  Serious: Yes (Other)
  Sender: FDA-Public Use
  Company Number: US-SA-2020SA277027

PATIENT
  Age: 58 Year
  Sex: Female

DRUGS (2)
  1. ZANTAC [Suspect]
     Active Substance: RANITIDINE HYDROCHLORIDE
     Indication: DYSPEPSIA
     Dosage: UNK, QW
     Dates: start: 200001, end: 200301
  2. ZANTAC [Suspect]
     Active Substance: RANITIDINE HYDROCHLORIDE
     Indication: ABDOMINAL DISCOMFORT

REACTIONS (4)
  - Bladder cancer [Unknown]
  - Gallbladder cancer stage I [Recovering/Resolving]
  - Gastric cancer stage I [Recovering/Resolving]
  - Lung neoplasm malignant [Unknown]

NARRATIVE: CASE EVENT DATE: 20000101
